FAERS Safety Report 25570049 (Version 4)
Quarter: 2025Q3

REPORT INFORMATION
  Report Type: Spontaneous
  Country: US (occurrence: US)
  Receive Date: 20250717
  Receipt Date: 20250820
  Transmission Date: 20251020
  Serious: Yes (Other)
  Sender: SANDOZ
  Company Number: US-SANDOZ-SDZ2025US049444

PATIENT
  Sex: Female

DRUGS (2)
  1. ESTRADIOL [Suspect]
     Active Substance: ESTRADIOL
     Indication: Product used for unknown indication
     Dosage: STRENGTH 0.1MG/1D 4TTSM
     Route: 062
  2. ESTRADIOL [Suspect]
     Active Substance: ESTRADIOL
     Indication: Product used for unknown indication
     Dosage: STRENGTH 0.1MG/1D 4TTSM, QW
     Route: 062

REACTIONS (5)
  - Haemorrhage [Unknown]
  - Night sweats [Not Recovered/Not Resolved]
  - Incorrect dose administered by device [Unknown]
  - Poor quality product administered [Unknown]
  - Device adhesion issue [Unknown]
